FAERS Safety Report 13717680 (Version 1)
Quarter: 2017Q3

REPORT INFORMATION
  Report Type: Other
  Country: FR (occurrence: FR)
  Receive Date: 20170705
  Receipt Date: 20170705
  Transmission Date: 20171127
  Serious: Yes (Life-Threatening, Hospitalization)
  Sender: FDA-Public Use
  Company Number: FR-EMCURE PHARMS-2017HTG00166

PATIENT
  Age: 63 Year
  Sex: Male
  Weight: 68 kg

DRUGS (4)
  1. CYTARABINE. [Suspect]
     Active Substance: CYTARABINE
     Indication: BONE MARROW CONDITIONING REGIMEN
     Dosage: 360 MG, 2X/DAY
     Route: 042
     Dates: start: 20160609, end: 20160612
  2. ALKERAN [Suspect]
     Active Substance: MELPHALAN
     Indication: BONE MARROW CONDITIONING REGIMEN
     Dosage: 250 MG, ONCE
     Route: 042
     Dates: start: 20160613, end: 20160613
  3. BICNU [Suspect]
     Active Substance: CARMUSTINE
     Indication: BONE MARROW CONDITIONING REGIMEN
     Dosage: 540 MG, ONCE
     Route: 042
     Dates: start: 20160609, end: 20160609
  4. ETOPOSIDE. [Suspect]
     Active Substance: ETOPOSIDE
     Indication: BONE MARROW CONDITIONING REGIMEN
     Dosage: 180 MG, 2X/DAY
     Route: 042
     Dates: start: 20160609, end: 20160612

REACTIONS (2)
  - Febrile bone marrow aplasia [Recovered/Resolved]
  - Staphylococcal infection [Recovered/Resolved]

NARRATIVE: CASE EVENT DATE: 20160618
